FAERS Safety Report 12517758 (Version 2)
Quarter: 2016Q3

REPORT INFORMATION
  Report Type: Spontaneous
  Country: US (occurrence: US)
  Receive Date: 20160630
  Receipt Date: 20160921
  Transmission Date: 20161109
  Serious: Yes (Other)
  Sender: FDA-Public Use
  Company Number: US-SA-2016SA119775

PATIENT
  Age: 28 Year
  Sex: Female

DRUGS (8)
  1. IBUPROFEN. [Concomitant]
     Active Substance: IBUPROFEN
     Indication: PROPHYLAXIS
     Route: 048
     Dates: start: 20160613, end: 20160617
  2. EPIPEN [Concomitant]
     Active Substance: EPINEPHRINE
     Dosage: DOSE:1 MILLIGRAM(S)/MILLILITRE
     Dates: start: 20160607
  3. RIZATRIPTAN BENZOATE. [Concomitant]
     Active Substance: RIZATRIPTAN BENZOATE
     Dosage: PRN
     Route: 048
     Dates: start: 20160607
  4. LEMTRADA [Suspect]
     Active Substance: ALEMTUZUMAB
     Indication: MULTIPLE SCLEROSIS
     Route: 042
     Dates: start: 20160613, end: 20160617
  5. HYDROXYZINE HYDROCHLORIDE. [Concomitant]
     Active Substance: HYDROXYZINE HYDROCHLORIDE
     Dosage: QD FOR 7 DAYS THEN AS NEEDED
     Route: 048
     Dates: start: 20160607
  6. ACETAMINOPHEN. [Concomitant]
     Active Substance: ACETAMINOPHEN
     Indication: PROPHYLAXIS
     Route: 048
     Dates: start: 20160613, end: 20160617
  7. RANITIDINE HYDROCHLORIDE. [Concomitant]
     Active Substance: RANITIDINE HYDROCHLORIDE
     Dosage: BEDTIME
     Route: 048
     Dates: start: 20160607
  8. ACYCLOVIR. [Concomitant]
     Active Substance: ACYCLOVIR
     Route: 048
     Dates: start: 20160607

REACTIONS (6)
  - Headache [Recovered/Resolved]
  - Electrocardiogram QT prolonged [Unknown]
  - Bradycardia [Unknown]
  - Thrombocytopenia [Recovered/Resolved]
  - Chest discomfort [Unknown]
  - Bradycardia [Recovered/Resolved]

NARRATIVE: CASE EVENT DATE: 20160613
